FAERS Safety Report 24777730 (Version 2)
Quarter: 2025Q1

REPORT INFORMATION
  Report Type: Spontaneous
  Country: JP (occurrence: JP)
  Receive Date: 20241226
  Receipt Date: 20250109
  Transmission Date: 20250408
  Serious: Yes (Hospitalization)
  Sender: BAYER HEALTHCARE PHARMACEUTICALS INC.
  Company Number: JP-BAYER-2024A182104

PATIENT
  Age: 6 Decade
  Sex: Female

DRUGS (4)
  1. ADEMPAS [Suspect]
     Active Substance: RIOCIGUAT
     Indication: Pulmonary arterial hypertension
  2. TREPROSTINIL [Concomitant]
     Active Substance: TREPROSTINIL
     Route: 058
  3. SELEXIPAG [Concomitant]
     Active Substance: SELEXIPAG
  4. MACITENTAN [Concomitant]
     Active Substance: MACITENTAN

REACTIONS (2)
  - Cardiac failure [None]
  - Therapeutic product effect incomplete [None]
